FAERS Safety Report 18249201 (Version 5)
Quarter: 2020Q4

REPORT INFORMATION
  Report Type: Spontaneous
  Country: TN (occurrence: TN)
  Receive Date: 20200909
  Receipt Date: 20201123
  Transmission Date: 20210113
  Serious: Yes (Death, Other)
  Sender: FDA-Public Use
  Company Number: TN-BIOVITRUM-2020TN4765

PATIENT
  Age: 1 Month
  Sex: Female

DRUGS (4)
  1. ORFADIN [Suspect]
     Active Substance: NITISINONE
     Dates: start: 20200731
  2. ORFADIN [Suspect]
     Active Substance: NITISINONE
     Dosage: 52.6 ?MOL/L
  3. ORFADIN [Suspect]
     Active Substance: NITISINONE
     Indication: TYROSINAEMIA
     Dates: start: 20200622
  4. L-THYROXINE [Concomitant]
     Active Substance: LEVOTHYROXINE

REACTIONS (9)
  - Hepatic encephalopathy [Fatal]
  - Succinylacetone increased [Unknown]
  - Hypothyroidism [Unknown]
  - Gastroenteritis [Unknown]
  - Toxicity to various agents [Unknown]
  - Seizure [Unknown]
  - Prothrombin level decreased [Unknown]
  - Drug interaction [Unknown]
  - Alpha 1 foetoprotein decreased [Unknown]

NARRATIVE: CASE EVENT DATE: 20200622
